FAERS Safety Report 9535628 (Version 2)
Quarter: 2013Q3

REPORT INFORMATION
  Report Type: Report from Study
  Country: CA (occurrence: CA)
  Receive Date: 20130919
  Receipt Date: 20130919
  Transmission Date: 20140515
  Serious: Yes (Death)
  Sender: FDA-Public Use
  Company Number: CA-ROCHE-1230126

PATIENT
  Age: 37 Year
  Sex: Female
  Weight: 94.8 kg

DRUGS (2)
  1. AVASTIN [Suspect]
     Indication: GLIOBLASTOMA
     Route: 042
     Dates: start: 20121025, end: 20130502
  2. TRAMADOL [Concomitant]

REACTIONS (3)
  - Fatigue [Recovered/Resolved]
  - Disease progression [Unknown]
  - Death [Fatal]
